FAERS Safety Report 16529524 (Version 2)
Quarter: 2019Q4

REPORT INFORMATION
  Report Type: Spontaneous
  Country: US (occurrence: US)
  Receive Date: 20190703
  Receipt Date: 20191001
  Transmission Date: 20200122
  Serious: Yes (Hospitalization, Other)
  Sender: FDA-Public Use
  Company Number: US-ASTRAZENECA-2018SF21119

PATIENT
  Age: 55 Year
  Sex: Male
  Weight: 92.5 kg

DRUGS (117)
  1. NEXIUM [Suspect]
     Active Substance: ESOMEPRAZOLE MAGNESIUM
     Indication: GASTROOESOPHAGEAL REFLUX DISEASE
     Route: 048
     Dates: start: 1995, end: 2014
  2. PRILOSEC [Suspect]
     Active Substance: OMEPRAZOLE MAGNESIUM
     Indication: GASTROOESOPHAGEAL REFLUX DISEASE
     Route: 048
  3. PRILOSEC [Suspect]
     Active Substance: OMEPRAZOLE MAGNESIUM
     Indication: GASTROOESOPHAGEAL REFLUX DISEASE
     Route: 048
     Dates: start: 1995, end: 2001
  4. OXID [Concomitant]
  5. AMLODIPINE BESYLATE. [Concomitant]
     Active Substance: AMLODIPINE BESYLATE
     Indication: HYPERTENSION
  6. AMLODIPINE BESYLATE. [Concomitant]
     Active Substance: AMLODIPINE BESYLATE
     Indication: ANGINA PECTORIS
  7. ARICEPT [Concomitant]
     Active Substance: DONEPEZIL HYDROCHLORIDE
     Indication: DEMENTIA ALZHEIMER^S TYPE
  8. ATENOLOL. [Concomitant]
     Active Substance: ATENOLOL
     Indication: HYPERTENSION
  9. CLOBETASOL [Concomitant]
     Active Substance: CLOBETASOL
     Indication: SKIN DISORDER
  10. CYCLOBENZAPRINE. [Concomitant]
     Active Substance: CYCLOBENZAPRINE
     Indication: PAIN
  11. CYCLOBENZAPRINE. [Concomitant]
     Active Substance: CYCLOBENZAPRINE
     Indication: MUSCULOSKELETAL STIFFNESS
  12. DOXYCYCLINE. [Concomitant]
     Active Substance: DOXYCYCLINE
     Indication: URINARY TRACT DISORDER
  13. FELODIPINE. [Concomitant]
     Active Substance: FELODIPINE
     Indication: HYPERTENSION
  14. FENOFIBRIC [Concomitant]
     Active Substance: FENOFIBRIC ACID
     Indication: BLOOD CHOLESTEROL INCREASED
  15. HYDROCHLOROTHIAZIDE. [Concomitant]
     Active Substance: HYDROCHLOROTHIAZIDE
     Indication: OEDEMA
  16. ISOSORB MONO ER [Concomitant]
     Active Substance: ISOSORBIDE MONONITRATE
     Indication: CHEST PAIN
  17. SUCRALFATE. [Concomitant]
     Active Substance: SUCRALFATE
  18. TAMSULOSIN [Concomitant]
     Active Substance: TAMSULOSIN
  19. TRIAMCINOLON E [Concomitant]
     Active Substance: CHLOROXINE\TRIAMCINOLONE ACETONIDE
  20. LIPITOR [Concomitant]
     Active Substance: ATORVASTATIN CALCIUM
  21. CENTRUM [Concomitant]
     Active Substance: VITAMINS
  22. ATENOLOL. [Concomitant]
     Active Substance: ATENOLOL
     Indication: ANGINA PECTORIS
  23. BROMAX [Concomitant]
     Active Substance: BROMPHENIRAMINE MALEATE
     Indication: NASOPHARYNGITIS
  24. DOXAZOSIN [Concomitant]
     Active Substance: DOXAZOSIN MESYLATE
     Indication: HYPERTENSION
  25. ENDAL [Concomitant]
     Indication: BACTERIAL INFECTION
  26. FUROSEMIDE. [Concomitant]
     Active Substance: FUROSEMIDE
     Indication: OEDEMA
  27. GABAPENTIN. [Concomitant]
     Active Substance: GABAPENTIN
     Indication: SEIZURE
  28. HYDROCO [Concomitant]
     Indication: PAIN
  29. IBUPROFEN. [Concomitant]
     Active Substance: IBUPROFEN
     Indication: PAIN
  30. ISO HYOSCINEO [Concomitant]
     Indication: MUSCLE SPASMS
  31. JANUVIA [Concomitant]
     Active Substance: SITAGLIPTIN PHOSPHATE
     Indication: TYPE 2 DIABETES MELLITUS
  32. METHOCARBAM [Concomitant]
     Active Substance: METHOCARBAMOL
     Indication: PAIN
  33. METHYLPRED [Concomitant]
     Active Substance: METHYLPREDNISOLONE
     Indication: INFLAMMATION
  34. RAZADYNE [Concomitant]
     Active Substance: GALANTAMINE HYDROBROMIDE
  35. VYTORIN [Concomitant]
     Active Substance: EZETIMIBE\SIMVASTATIN
  36. ZOCOR [Concomitant]
     Active Substance: SIMVASTATIN
  37. ACETAMI/CODEIN [Concomitant]
     Indication: PAIN
  38. BETAMETHA [Concomitant]
     Indication: SKIN DISORDER
  39. CARVEDILOL. [Concomitant]
     Active Substance: CARVEDILOL
     Indication: HYPERTENSION
  40. CARVEDILOL. [Concomitant]
     Active Substance: CARVEDILOL
     Indication: CARDIAC FAILURE
  41. FLUOROURACIL. [Concomitant]
     Active Substance: FLUOROURACIL
     Indication: SUNBURN
  42. FLUTICASONE. [Concomitant]
     Active Substance: FLUTICASONE
     Indication: PRURITUS
  43. GENTAMICIN. [Concomitant]
     Active Substance: GENTAMICIN
     Indication: INFECTION
  44. HYDROCHLOROTHIAZIDE. [Concomitant]
     Active Substance: HYDROCHLOROTHIAZIDE
     Indication: OEDEMA
  45. IBUPROFEN. [Concomitant]
     Active Substance: IBUPROFEN
     Indication: PYREXIA
  46. LISINOPRIL. [Concomitant]
     Active Substance: LISINOPRIL
     Indication: HYPERTENSION
  47. PRAVASTATIN. [Concomitant]
     Active Substance: PRAVASTATIN
  48. NEXIUM [Suspect]
     Active Substance: ESOMEPRAZOLE MAGNESIUM
     Indication: GASTROOESOPHAGEAL REFLUX DISEASE
     Route: 048
  49. BETAMETHASONE. [Concomitant]
     Active Substance: BETAMETHASONE
     Indication: SKIN DISORDER
  50. CELEBREX [Concomitant]
     Active Substance: CELECOXIB
     Indication: PAIN
  51. DOXYCYCLINE. [Concomitant]
     Active Substance: DOXYCYCLINE
     Indication: BACTERIAL INFECTION
  52. ONDANSETRON [Concomitant]
     Active Substance: ONDANSETRON
  53. PROMETHAZINE [Concomitant]
     Active Substance: PROMETHAZINE HYDROCHLORIDE
  54. PRILOSEC [Suspect]
     Active Substance: OMEPRAZOLE MAGNESIUM
     Indication: GASTROOESOPHAGEAL REFLUX DISEASE
     Route: 048
     Dates: start: 1995, end: 2014
  55. DESYREL [Concomitant]
     Active Substance: TRAZODONE HYDROCHLORIDE
  56. PROCARDIA [Concomitant]
     Active Substance: NIFEDIPINE
  57. PLAVIX [Concomitant]
     Active Substance: CLOPIDOGREL BISULFATE
  58. BENZONATATE. [Concomitant]
     Active Substance: BENZONATATE
     Indication: COUGH
  59. CRESTOR [Concomitant]
     Active Substance: ROSUVASTATIN CALCIUM
     Indication: BLOOD CHOLESTEROL INCREASED
  60. DOXAZOSIN [Concomitant]
     Active Substance: DOXAZOSIN MESYLATE
     Indication: URINARY TRACT DISORDER
  61. ENDAL [Concomitant]
     Indication: NASOPHARYNGITIS
  62. ACETAMINOPHEN. [Concomitant]
     Active Substance: ACETAMINOPHEN
     Indication: PAIN
  63. MUCO-FEN [Concomitant]
     Active Substance: DEXTROMETHORPHAN HYDROBROMIDE\GUAIFENESIN
     Indication: RHINORRHOEA
  64. NITROGLYCERIN. [Concomitant]
     Active Substance: NITROGLYCERIN
     Indication: CHEST PAIN
  65. TETRACYCLINE [Concomitant]
     Active Substance: TETRACYCLINE
  66. PANTOPRAZOLE [Suspect]
     Active Substance: PANTOPRAZOLE
     Indication: GASTROOESOPHAGEAL REFLUX DISEASE
     Route: 065
     Dates: start: 2015, end: 2016
  67. COREG CR [Concomitant]
     Active Substance: CARVEDILOL PHOSPHATE
     Indication: HYPERTENSION
  68. FENOFIBRIC [Concomitant]
     Active Substance: FENOFIBRIC ACID
     Indication: BLOOD TRIGLYCERIDES ABNORMAL
  69. FENTANYL. [Concomitant]
     Active Substance: FENTANYL
     Indication: PAIN
  70. FLUTICASONE. [Concomitant]
     Active Substance: FLUTICASONE
     Indication: PAIN
  71. GABAPENTIN. [Concomitant]
     Active Substance: GABAPENTIN
     Indication: PAIN
  72. HYDROCHLOROTHIAZIDE. [Concomitant]
     Active Substance: HYDROCHLOROTHIAZIDE
     Indication: HYPERTENSION
  73. HYDROCHLOROTHIAZIDE. [Concomitant]
     Active Substance: HYDROCHLOROTHIAZIDE
     Indication: HYPERTENSION
  74. NITROSTAT [Concomitant]
     Active Substance: NITROGLYCERIN
     Indication: CHEST PAIN
  75. PAXIL [Concomitant]
     Active Substance: PAROXETINE HYDROCHLORIDE
  76. PREDNISONE. [Concomitant]
     Active Substance: PREDNISONE
  77. RANEXA [Concomitant]
     Active Substance: RANOLAZINE
  78. SALSALATE. [Concomitant]
     Active Substance: SALSALATE
  79. TRILIPIX [Concomitant]
     Active Substance: FENOFIBRIC ACID
  80. VIOXX [Concomitant]
     Active Substance: ROFECOXIB
  81. WARFARIN [Concomitant]
     Active Substance: WARFARIN
  82. VITAMIN D [Concomitant]
     Active Substance: VITAMIN D NOS
  83. NEXIUM [Suspect]
     Active Substance: ESOMEPRAZOLE MAGNESIUM
     Indication: GASTROOESOPHAGEAL REFLUX DISEASE
     Route: 048
     Dates: start: 2001
  84. ZYPREXA [Concomitant]
     Active Substance: OLANZAPINE
  85. ATACAND [Concomitant]
     Active Substance: CANDESARTAN CILEXETIL
     Indication: HYPERTENSION
  86. ATACAND [Concomitant]
     Active Substance: CANDESARTAN CILEXETIL
     Indication: CARDIAC FAILURE
  87. AZITHROMYCIN ANHYDROUS. [Concomitant]
     Active Substance: AZITHROMYCIN ANHYDROUS
     Indication: INFECTION
  88. BUTAL/ACETA/CF [Concomitant]
     Indication: TENSION
  89. COREG CR [Concomitant]
     Active Substance: CARVEDILOL PHOSPHATE
     Indication: CARDIAC FAILURE
  90. FELODIPINE. [Concomitant]
     Active Substance: FELODIPINE
     Indication: CEREBROVASCULAR ACCIDENT
  91. FLUTICASONE. [Concomitant]
     Active Substance: FLUTICASONE
     Indication: SWELLING
  92. GENTAMICIN. [Concomitant]
     Active Substance: GENTAMICIN
     Indication: PAIN
  93. HYDROCODONE [Concomitant]
     Active Substance: HYDROCODONE
     Indication: COUGH
  94. LOSARTAN. [Concomitant]
     Active Substance: LOSARTAN
     Indication: HYPERTENSION
  95. METHOCARBAM [Concomitant]
     Active Substance: METHOCARBAMOL
     Indication: MUSCLE SPASMS
  96. METHYLPRED [Concomitant]
     Active Substance: METHYLPREDNISOLONE
     Indication: MULTIPLE ALLERGIES
  97. SODIUM BICARBONATE. [Concomitant]
     Active Substance: SODIUM BICARBONATE
  98. TUSSIONEX PENNKINETIC [Concomitant]
     Active Substance: CHLORPHENIRAMINE\HYDROCODONE
  99. ULTRACET [Concomitant]
     Active Substance: ACETAMINOPHEN\TRAMADOL HYDROCHLORIDE
  100. MAGNESIUM [Concomitant]
     Active Substance: MAGNESIUM
  101. ANDROGEL [Concomitant]
     Active Substance: TESTOSTERONE
     Indication: BLOOD TESTOSTERONE DECREASED
  102. BUTAL/ACETA/CF [Concomitant]
     Indication: HEADACHE
  103. CEPHALEXIN. [Concomitant]
     Active Substance: CEPHALEXIN
     Indication: INFECTION
  104. CIPROFLOXACIN. [Concomitant]
     Active Substance: CIPROFLOXACIN
     Indication: INFECTION
  105. COLCHICINE. [Concomitant]
     Active Substance: COLCHICINE
     Indication: GOUT
  106. CRESTOR [Concomitant]
     Active Substance: ROSUVASTATIN CALCIUM
     Indication: BLOOD TRIGLYCERIDES ABNORMAL
  107. FUROSEMIDE. [Concomitant]
     Active Substance: FUROSEMIDE
     Indication: SWELLING
  108. GUAIFENEX [Concomitant]
     Active Substance: GUAIFENESIN\PHENYLEPHRINE\PHENYLPROPANOLAMINE
     Indication: COUGH
  109. INDOMETHACIN. [Concomitant]
     Active Substance: INDOMETHACIN
     Indication: PAIN
  110. LEFLUNOMIDE. [Concomitant]
     Active Substance: LEFLUNOMIDE
     Indication: RHEUMATOID ARTHRITIS
  111. LEVITRA [Concomitant]
     Active Substance: VARDENAFIL HYDROCHLORIDE
     Indication: ERECTILE DYSFUNCTION
  112. METFORMIN [Concomitant]
     Active Substance: METFORMIN HYDROCHLORIDE
     Indication: TYPE 2 DIABETES MELLITUS
  113. QUIXIN [Concomitant]
     Active Substance: LEVOFLOXACIN
  114. SIMVASTATIN. [Concomitant]
     Active Substance: SIMVASTATIN
  115. TRAMADOL. [Concomitant]
     Active Substance: TRAMADOL
  116. ZETIA [Concomitant]
     Active Substance: EZETIMIBE
  117. CIMETIDINE [Concomitant]
     Active Substance: CIMETIDINE

REACTIONS (1)
  - Chronic kidney disease [Not Recovered/Not Resolved]

NARRATIVE: CASE EVENT DATE: 2004
